FAERS Safety Report 8454177-1 (Version None)
Quarter: 2012Q2

REPORT INFORMATION
  Report Type: 
  Country: None (occurrence: None)
  Receive Date: 20120620
  Receipt Date: 20120612
  Transmission Date: 20120825
  Serious: Yes (Hospitalization)
  Sender: FDA-Public Use
  Company Number: FR-B.I. PHARMACEUTICALS,INC./RIDGEFIELD-2012-FF-00743FF

PATIENT
  Age: 61 Year
  Sex: Male

DRUGS (7)
  1. CRESTOR [Concomitant]
  2. LEXOMIL [Concomitant]
  3. VALSARTAN [Concomitant]
  4. HAVLANE [Concomitant]
  5. INSPRA [Concomitant]
  6. LASIX [Concomitant]
  7. PRADAXA [Suspect]
     Indication: ATRIAL FIBRILLATION
     Dosage: 220 MG
     Route: 048
     Dates: end: 20120517

REACTIONS (1)
  - RENAL FAILURE [None]
